FAERS Safety Report 19001603 (Version 1)
Quarter: 2021Q1

REPORT INFORMATION
  Report Type: Spontaneous
  Country: US (occurrence: US)
  Receive Date: 20210312
  Receipt Date: 20210312
  Transmission Date: 20210420
  Serious: No
  Sender: FDA-Public Use
  Company Number: US-FARMAPROD-202011-1454

PATIENT
  Sex: Female

DRUGS (17)
  1. OXERVATE [Suspect]
     Active Substance: CENEGERMIN-BKBJ
     Indication: ULCERATIVE KERATITIS
     Route: 047
     Dates: start: 20201008
  2. POTASSIUM [Concomitant]
     Active Substance: POTASSIUM
     Dosage: 595 (99) MG
  3. PROLENSA [Concomitant]
     Active Substance: BROMFENAC SODIUM
  4. THERATEARS [Concomitant]
     Active Substance: CARBOXYMETHYLCELLULOSE SODIUM
  5. BETA CAROTENE. [Concomitant]
     Active Substance: BETA CAROTENE
  6. NEURONTIN [Concomitant]
     Active Substance: GABAPENTIN
  7. ZINC. [Concomitant]
     Active Substance: ZINC
  8. FISH OIL [Concomitant]
     Active Substance: FISH OIL
     Dosage: 100?150 MG
  9. METHOTREXATE. [Concomitant]
     Active Substance: METHOTREXATE
  10. OXYCODONE HYDROCHLORIDE. [Concomitant]
     Active Substance: OXYCODONE HYDROCHLORIDE
  11. GENTAMICIN SULFATE. [Concomitant]
     Active Substance: GENTAMICIN SULFATE
  12. MELATONIN [Concomitant]
     Active Substance: MELATONIN
  13. ESTRADIOL. [Concomitant]
     Active Substance: ESTRADIOL
  14. VITAMINE C [Concomitant]
     Active Substance: ASCORBIC ACID
  15. RITUXAN [Concomitant]
     Active Substance: RITUXIMAB
     Dosage: VIAL
  16. REFRESH CELLUVISC [Concomitant]
     Active Substance: CARBOXYMETHYLCELLULOSE SODIUM
  17. PREDNISONE. [Concomitant]
     Active Substance: PREDNISONE

REACTIONS (1)
  - Eyelid pain [Not Recovered/Not Resolved]
